FAERS Safety Report 16600462 (Version 1)
Quarter: 2019Q3

REPORT INFORMATION
  Report Type: Spontaneous
  Country: DE (occurrence: DE)
  Receive Date: 20190720
  Receipt Date: 20190720
  Transmission Date: 20191004
  Serious: Yes (Life-Threatening, Hospitalization)
  Sender: FDA-Public Use
  Company Number: DE-ACCORD-139408

PATIENT
  Age: 39 Year
  Sex: Female
  Weight: 75 kg

DRUGS (20)
  1. METAMIZOLE SODIUM [Concomitant]
     Active Substance: METAMIZOLE SODIUM
     Dosage: 2500 MG, 1-0-1-0, VIALS
     Route: 042
  2. CIPROFLOXACIN. [Concomitant]
     Active Substance: CIPROFLOXACIN
     Dosage: 400 MG, 1-0-1-0, SOLUTION FOR INJECTION / INFUSION
     Route: 042
  3. ONDANSETRON [Concomitant]
     Active Substance: ONDANSETRON
     Dosage: 8 MG, IF NEEDED 3X / DAY, TABLETS
     Route: 048
  4. FOLIC ACID. [Concomitant]
     Active Substance: FOLIC ACID
     Dosage: 5 MG, 1-0-0-0, TABLET
     Route: 048
  5. MOLSIDOMINE [Concomitant]
     Active Substance: MOLSIDOMINE
     Dosage: 8 MG, 0-0-1-0, TABLET
     Route: 048
  6. HYDROMORPHONE/HYDROMORPHONE HYDROCHLORIDE [Concomitant]
     Dosage: 8 MG, 1-1-1-1, CAPSULE,2.5 MG, 4X DAILY IF NEEDED, CAPSULES
     Route: 048
  7. PARACETAMOL [Concomitant]
     Active Substance: ACETAMINOPHEN
     Dosage: 1000 MG, IF NEEDED, SUPPOSITORIES
     Route: 054
  8. SULFASALAZINE. [Concomitant]
     Active Substance: SULFASALAZINE
     Dosage: 500 MG, 2-0-2-0, TABLET
     Route: 048
  9. FUROSEMIDE. [Concomitant]
     Active Substance: FUROSEMIDE
     Dosage: 40 MG, 2-2-2-0, TABLET
     Route: 048
  10. PREDNISOLONE. [Suspect]
     Active Substance: PREDNISOLONE
     Indication: PRODUCT USED FOR UNKNOWN INDICATION
     Dosage: 50 MG, 60MG-0-0-0, SOLUTION FOR INJECTION / INFUSION
     Route: 042
  11. DABIGATRAN/DABIGATRAN ETEXILATE [Concomitant]
     Dosage: 150 MG, 1-0-1-0, CAPSULE
     Route: 048
  12. IBUPROFEN. [Concomitant]
     Active Substance: IBUPROFEN
     Dosage: 600 MG,  IF NEEDED 2X DAILY TABLETS, FOR PAIN UP TO 3X / DAY, TABLETS
     Route: 048
  13. VANCOMYCIN [Concomitant]
     Active Substance: VANCOMYCIN
     Dosage: 1 G, 1-0-1-0, SOLUTION FOR INJECTION / INFUSION
     Route: 042
  14. CANRENOIC ACID [Concomitant]
     Active Substance: CANRENOIC ACID
     Dosage: 200 MG, 1-1-0-0, VIALS
     Route: 042
  15. PANTOPRAZOLE [Concomitant]
     Active Substance: PANTOPRAZOLE
     Dosage: 40 MG, 1-0-0-0, TABLET
     Route: 048
  16. MYCOPHENOLATE MOFETIL/MYCOPHENOLATE SODIUM/MYCOPHENOLIC ACID [Suspect]
     Active Substance: MYCOPHENOLIC ACID
     Indication: PRODUCT USED FOR UNKNOWN INDICATION
     Dosage: 360 MG, 1-0-1-0, TABLET
     Route: 048
  17. METOCLOPRAMIDE. [Concomitant]
     Active Substance: METOCLOPRAMIDE
     Dosage: 10 MG, IF NEEDED 3X / DAY, AMPOULES
     Route: 042
  18. COLECALCIFEROL [Concomitant]
     Active Substance: CHOLECALCIFEROL
     Dosage: 0.5 MG, 10-10-10-10, DROPS
     Route: 048
  19. GRANULOCYTE COLONY STIMULATING [Concomitant]
     Active Substance: GRANULOCYTE COLONY-STIMULATING FACTOR NOS
     Dosage: 33600000 IU, ACCORDING TO SCHEME / LEUKOS WITH TAVEGIL AND RANITIDINE AS PREMEDICATION
     Route: 058
  20. HYDROCHLOROTHIAZIDE. [Concomitant]
     Active Substance: HYDROCHLOROTHIAZIDE
     Dosage: 25 MG, 1-1-0-0, TABLET
     Route: 048

REACTIONS (4)
  - General physical health deterioration [Unknown]
  - Delirium [Unknown]
  - Pain [Unknown]
  - Disturbance in attention [Unknown]
